FAERS Safety Report 10402692 (Version 1)
Quarter: 2014Q3

REPORT INFORMATION
  Report Type: Report from Study
  Country: NL (occurrence: NL)
  Receive Date: 20140822
  Receipt Date: 20140822
  Transmission Date: 20150326
  Serious: Yes (Death)
  Sender: FDA-Public Use
  Company Number: NL-SA-2014SA113865

PATIENT
  Age: 62 Year
  Sex: Male

DRUGS (2)
  1. OXALIPLATIN. [Suspect]
     Active Substance: OXALIPLATIN
     Indication: COLORECTAL CANCER METASTATIC
     Dosage: BOLUS IN THE ISOLATED HEPATIC CIRCUIT
  2. MELPHALAN [Suspect]
     Active Substance: MELPHALAN
     Indication: COLORECTAL CANCER METASTATIC
     Dosage: DISOLVED IN 40 ML WELLCOME DILUENT WHICH WAS SUBSEQUENTLY DILUTED WITH 60 ML STERILE SALINE

REACTIONS (2)
  - Hepatotoxicity [Fatal]
  - Venoocclusive liver disease [Fatal]
